FAERS Safety Report 11885684 (Version 1)
Quarter: 2016Q1

REPORT INFORMATION
  Report Type: Spontaneous
  Country: US (occurrence: US)
  Receive Date: 20160104
  Receipt Date: 20160104
  Transmission Date: 20160526
  Serious: Yes (Death, Life-Threatening)
  Sender: FDA-Public Use
  Company Number: US-FRESENIUS KABI-FK201506919

PATIENT
  Age: 53 Year
  Sex: Female

DRUGS (1)
  1. HEPARIN (MANUFACTURER UNKNOWN) [Suspect]
     Active Substance: HEPARIN SODIUM
     Indication: MYOCARDIAL INFARCTION
     Route: 065

REACTIONS (11)
  - Ischaemic stroke [Unknown]
  - Vena cava embolism [Unknown]
  - Pulmonary embolism [Unknown]
  - Death [Fatal]
  - Heparin-induced thrombocytopenia [Unknown]
  - Haemorrhagic transformation stroke [Unknown]
  - Atrial thrombosis [Unknown]
  - Renal infarct [Unknown]
  - Jugular vein thrombosis [Unknown]
  - Splenic infarction [Unknown]
  - Intestinal ischaemia [Unknown]
